FAERS Safety Report 8030792-4 (Version None)
Quarter: 2012Q1

REPORT INFORMATION
  Report Type: 
  Country: None (occurrence: None)
  Receive Date: 20120109
  Receipt Date: 20120102
  Transmission Date: 20120608
  Serious: Yes (Hospitalization)
  Sender: FDA-Public Use
  Company Number: PHHY2012FR000523

PATIENT
  Age: 35 Year
  Sex: Female

DRUGS (8)
  1. GANCICLOVIR SODIUM [Suspect]
     Dosage: UNK
     Dates: start: 20111207, end: 20111215
  2. CORTICOSTEROIDS [Concomitant]
  3. OFLOXACIN [Suspect]
     Dosage: UNK
     Dates: start: 20111206, end: 20111212
  4. FLAGYL [Suspect]
     Dosage: UNK
     Dates: start: 20111206, end: 20111211
  5. SANDIMMUNE [Suspect]
     Dosage: UNK
     Dates: start: 20111206
  6. IMURAN [Concomitant]
     Dosage: UNK
     Route: 048
     Dates: start: 20111213
  7. VALGANCICLOVIR [Concomitant]
     Dosage: UNK
     Route: 048
     Dates: start: 20111215
  8. NEORAL [Concomitant]

REACTIONS (9)
  - INSOMNIA [None]
  - GLOSSITIS [None]
  - RASH [None]
  - PAIN IN EXTREMITY [None]
  - SWOLLEN TONGUE [None]
  - PARAESTHESIA [None]
  - ERYTHEMA [None]
  - FEELING HOT [None]
  - PALPITATIONS [None]
